FAERS Safety Report 6242211-9 (Version None)
Quarter: 2009Q2

REPORT INFORMATION
  Report Type: 
  Country: None (occurrence: None)
  Receive Date: 20090624
  Receipt Date: 20090616
  Transmission Date: 20091009
  Serious: Yes (Other)
  Sender: FDA-Public Use
  Company Number: US-SOLVAY-00209002682

PATIENT
  Age: 25441 Day
  Sex: Female
  Weight: 71.363 kg

DRUGS (6)
  1. ANDROGEL [Suspect]
     Indication: ACCIDENTAL EXPOSURE
     Dosage: DAILY DOSE: 5 GRAM(S)
     Route: 062
     Dates: start: 20090401
  2. COZAAR [Concomitant]
     Indication: HYPERTENSION
     Dosage: DAILY DOSE:  UNKNOWN
     Route: 048
     Dates: start: 20090514
  3. UNIDENTIFIED BLOOD PRESSURE MEDICATION [Concomitant]
     Indication: HYPERTENSION
     Dosage: DAILY DOSE:  UNKNOWN
     Route: 048
     Dates: end: 20090507
  4. LISINOPRIL [Suspect]
     Indication: HYPERTENSION
     Dosage: DAILY DOSE:  UNKNOWN
     Route: 048
     Dates: start: 20090508, end: 20090513
  5. UNIDENTIFIED THYROID MEDICATION [Concomitant]
     Indication: THYROXINE THERAPY
     Dosage: DAILY DOSE:  UNKNOWN
     Route: 048
  6. ASPIRIN [Concomitant]
     Indication: DRUG USE FOR UNKNOWN INDICATION
     Dosage: DAILY DOSE: 2 DOSAGE FORM
     Route: 048

REACTIONS (1)
  - PNEUMONIA [None]
